FAERS Safety Report 16452420 (Version 3)
Quarter: 2019Q3

REPORT INFORMATION
  Report Type: Spontaneous
  Country: CO (occurrence: CO)
  Receive Date: 20190619
  Receipt Date: 20190919
  Transmission Date: 20191004
  Serious: Yes (Hospitalization, Other)
  Sender: FDA-Public Use
  Company Number: CO-GILEAD-2019-0413650

PATIENT
  Age: 67 Year
  Sex: Female

DRUGS (2)
  1. AMBRISENTAN [Suspect]
     Active Substance: AMBRISENTAN
     Indication: PULMONARY ARTERIAL HYPERTENSION
     Dosage: 5 MG, QD
     Route: 065
     Dates: start: 2013
  2. HEPARIN [Concomitant]
     Active Substance: HEPARIN SODIUM

REACTIONS (4)
  - Influenza [Unknown]
  - Epistaxis [Recovering/Resolving]
  - Abdominal pain [Unknown]
  - Intra-abdominal haematoma [Unknown]

NARRATIVE: CASE EVENT DATE: 20190529
